FAERS Safety Report 6075316-6 (Version None)
Quarter: 2009Q1

REPORT INFORMATION
  Report Type: 
  Country: None (occurrence: None)
  Receive Date: 20090212
  Receipt Date: 20090203
  Transmission Date: 20090719
  Serious: Yes (Hospitalization, Other)
  Sender: FDA-Public Use
  Company Number: US-NOVOPROD-283873

PATIENT
  Sex: Female
  Weight: 77.098 kg

DRUGS (1)
  1. NOVOLOG [Suspect]
     Indication: TYPE 2 DIABETES MELLITUS
     Dosage: 21 IU (6-5-10), QD
     Route: 058
     Dates: start: 20070101

REACTIONS (1)
  - PANCREATIC CARCINOMA [None]
